FAERS Safety Report 5907686-0 (Version None)
Quarter: 2008Q3

REPORT INFORMATION
  Report Type: 
  Country: None (occurrence: None)
  Receive Date: 20080929
  Receipt Date: 20080916
  Transmission Date: 20090109
  Serious: Yes (Other)
  Sender: FDA-Public Use
  Company Number: 1000000261

PATIENT
  Age: 71 Year
  Sex: Female

DRUGS (2)
  1. ESCITALOPRAM [Suspect]
     Dosage: ORAL
     Route: 048
     Dates: start: 20080704, end: 20080707
  2. NOROXIN [Concomitant]

REACTIONS (12)
  - ABDOMINAL PAIN UPPER [None]
  - BLOOD CHLORIDE DECREASED [None]
  - BLOOD OSMOLARITY DECREASED [None]
  - EPIGASTRIC DISCOMFORT [None]
  - GENERAL PHYSICAL HEALTH DETERIORATION [None]
  - HYPERTENSION [None]
  - HYPONATRAEMIA [None]
  - INAPPROPRIATE ANTIDIURETIC HORMONE SECRETION [None]
  - TREMOR [None]
  - URINE OSMOLARITY DECREASED [None]
  - URINE SODIUM DECREASED [None]
  - VOMITING [None]
